FAERS Safety Report 5719619-0 (Version None)
Quarter: 2008Q2

REPORT INFORMATION
  Report Type: 
  Country: None (occurrence: None)
  Receive Date: 20080428
  Receipt Date: 20080425
  Transmission Date: 20081010
  Serious: Yes (Life-Threatening, Hospitalization)
  Sender: FDA-Public Use
  Company Number: D0056667A

PATIENT
  Age: 68 Year
  Sex: Male
  Weight: 74 kg

DRUGS (4)
  1. AVANDAMET [Suspect]
     Route: 048
     Dates: start: 20050928, end: 20071111
  2. BLOPRESS [Concomitant]
     Route: 065
     Dates: start: 20050501
  3. FLUVASTATIN [Concomitant]
     Route: 065
  4. DELIX [Concomitant]
     Route: 065

REACTIONS (1)
  - PORTAL VEIN THROMBOSIS [None]
